FAERS Safety Report 22091732 (Version 1)
Quarter: 2023Q1

REPORT INFORMATION
  Report Type: Spontaneous
  Country: IT (occurrence: IT)
  Receive Date: 20230314
  Receipt Date: 20230314
  Transmission Date: 20230418
  Serious: Yes (Death, Other)
  Sender: FDA-Public Use
  Company Number: IT-AMGEN-ITASP2023038301

PATIENT
  Age: 52 Year
  Sex: Female

DRUGS (1)
  1. BEVACIZUMAB [Suspect]
     Active Substance: BEVACIZUMAB
     Indication: Breast cancer metastatic
     Dosage: 4800 MILLIGRAM
     Route: 065

REACTIONS (3)
  - Breast cancer metastatic [Fatal]
  - Osteonecrosis of jaw [Recovered/Resolved]
  - Oral discomfort [Recovered/Resolved]
